FAERS Safety Report 22522420 (Version 2)
Quarter: 2023Q2

REPORT INFORMATION
  Report Type: Report from Study
  Country: MX (occurrence: MX)
  Receive Date: 20230605
  Receipt Date: 20230617
  Transmission Date: 20230722
  Serious: Yes (Other)
  Sender: FDA-Public Use
  Company Number: MX-002147023-NVSC2023MX125921

PATIENT
  Age: 77 Year
  Sex: Female
  Weight: 65 kg

DRUGS (2)
  1. HYDROCHLOROTHIAZIDE\VALSARTAN [Suspect]
     Active Substance: HYDROCHLOROTHIAZIDE\VALSARTAN
     Indication: Blood pressure increased
     Dosage: 1 DOSAGE FORM OF (80/12.5 MG) QD (STARTED 48 YEARS AGO APPROXIMATELY
     Route: 048
  2. HYDROCHLOROTHIAZIDE\VALSARTAN [Suspect]
     Active Substance: HYDROCHLOROTHIAZIDE\VALSARTAN
     Dosage: 1 DOSAGE FORM OF 80/ 12.5MG, (25 YEARS AGO), QD
     Route: 048

REACTIONS (6)
  - Diabetes mellitus [Not Recovered/Not Resolved]
  - Road traffic accident [Unknown]
  - Fear [Unknown]
  - Blood pressure increased [Recovered/Resolved]
  - Blood pressure decreased [Recovered/Resolved]
  - Blood cholesterol increased [Recovered/Resolved]

NARRATIVE: CASE EVENT DATE: 20210301
